FAERS Safety Report 25453795 (Version 1)
Quarter: 2025Q2

REPORT INFORMATION
  Report Type: Spontaneous
  Country: JP (occurrence: JP)
  Receive Date: 20250619
  Receipt Date: 20250619
  Transmission Date: 20250716
  Serious: Yes (Other)
  Sender: NOVARTIS
  Company Number: JP-002147023-NVSJ2025JP006374

PATIENT
  Age: 56 Year

DRUGS (2)
  1. LEQVIO [Suspect]
     Active Substance: INCLISIRAN SODIUM
     Indication: Acute coronary syndrome
     Route: 058
     Dates: start: 20250214, end: 20250214
  2. LEQVIO [Suspect]
     Active Substance: INCLISIRAN SODIUM
     Indication: Prophylaxis

REACTIONS (2)
  - Hepatic function abnormal [Recovering/Resolving]
  - Off label use [Unknown]

NARRATIVE: CASE EVENT DATE: 20250514
